FAERS Safety Report 9188348 (Version 1)
Quarter: 2013Q1

REPORT INFORMATION
  Report Type: Spontaneous
  Country: FR (occurrence: FR)
  Receive Date: 20130325
  Receipt Date: 20130325
  Transmission Date: 20140127
  Serious: Yes (Other)
  Sender: FDA-Public Use
  Company Number: FR-PFIZER INC-2013050833

PATIENT
  Sex: Male

DRUGS (2)
  1. CHAMPIX [Suspect]
     Indication: SMOKING CESSATION THERAPY
     Dosage: 1 DF, 1X/DAY
  2. CHAMPIX [Suspect]
     Dosage: 2 DF, 1X/DAY

REACTIONS (3)
  - Suicidal ideation [Unknown]
  - Major depression [Unknown]
  - Anxiety [Unknown]
